FAERS Safety Report 17390623 (Version 1)
Quarter: 2020Q1

REPORT INFORMATION
  Report Type: Spontaneous
  Country: US (occurrence: US)
  Receive Date: 20200207
  Receipt Date: 20200207
  Transmission Date: 20200409
  Serious: No
  Sender: FDA-Public Use
  Company Number: US-PRAGMA PHARMACEUTICALS, LLC-2019PRG00245

PATIENT
  Sex: Female
  Weight: 58.5 kg

DRUGS (1)
  1. KEFLEX [Suspect]
     Active Substance: CEPHALEXIN
     Route: 048

REACTIONS (1)
  - Seasonal allergy [Recovering/Resolving]
